FAERS Safety Report 9863540 (Version 1)
Quarter: 2014Q1

REPORT INFORMATION
  Report Type: Spontaneous
  Country: US (occurrence: US)
  Receive Date: 20140203
  Receipt Date: 20140203
  Transmission Date: 20141002
  Serious: Yes (Other)
  Sender: FDA-Public Use
  Company Number: US-PFIZER INC-2014031101

PATIENT
  Age: 50 Year
  Sex: Male
  Weight: 129.25 kg

DRUGS (3)
  1. LYRICA [Suspect]
     Dosage: 150 MG, 4X/DAY
     Route: 048
     Dates: start: 201111
  2. METHADONE [Concomitant]
     Dosage: UNK
  3. MORPHINE [Concomitant]
     Dosage: UNK

REACTIONS (1)
  - Spinal disorder [Unknown]
